FAERS Safety Report 5591839-8 (Version None)
Quarter: 2008Q1

REPORT INFORMATION
  Report Type: 
  Country: None (occurrence: None)
  Receive Date: 20080115
  Receipt Date: 20080108
  Transmission Date: 20080703
  Serious: Yes (Other)
  Sender: FDA-Public Use
  Company Number: B0502202A

PATIENT
  Age: 35 Year
  Sex: Female

DRUGS (1)
  1. DEROXAT [Suspect]
     Route: 048
     Dates: start: 20071101, end: 20071230

REACTIONS (5)
  - ECZEMA [None]
  - FACE OEDEMA [None]
  - LOCALISED OEDEMA [None]
  - PRURITUS [None]
  - SKIN EXFOLIATION [None]
